FAERS Safety Report 9622302 (Version 1)
Quarter: 2013Q4

REPORT INFORMATION
  Report Type: Spontaneous
  Country: US (occurrence: None)
  Receive Date: 20131010
  Receipt Date: 20131010
  Transmission Date: 20140711
  Serious: Yes (Life-Threatening)
  Sender: FDA-Public Use
  Company Number: 54973 AE # 1510

PATIENT
  Age: 31 Year
  Sex: Female

DRUGS (1)
  1. HYLAND^S TEETHING GEL [Suspect]
     Indication: TEETHING
     Dosage: ONE APPLICATION TO GUMS

REACTIONS (3)
  - Urticaria [None]
  - Pruritus generalised [None]
  - Pharyngeal oedema [None]
